FAERS Safety Report 5786256-1 (Version None)
Quarter: 2008Q2

REPORT INFORMATION
  Report Type: 
  Country: None (occurrence: None)
  Receive Date: 20080624
  Receipt Date: 20080613
  Transmission Date: 20081010
  Serious: Yes (Hospitalization)
  Sender: FDA-Public Use
  Company Number: DE-ELI_LILLY_AND_COMPANY-DE200806003254

PATIENT
  Age: 54 Year
  Sex: Female

DRUGS (7)
  1. CYMBALTA [Suspect]
     Indication: DEPRESSION
     Dosage: 90 MG, DAILY (1/D)
     Route: 048
     Dates: start: 20070116, end: 20070131
  2. CYMBALTA [Suspect]
     Dosage: 60 MG, DAILY (1/D)
     Route: 048
     Dates: start: 20070131, end: 20070203
  3. CYMBALTA [Suspect]
     Dosage: 30 MG, DAILY (1/D)
     Route: 048
     Dates: start: 20070203, end: 20070205
  4. CYMBALTA [Suspect]
     Dosage: 120 MG, DAILY (1/D)
  5. BISOPROLOL FUMARATE [Concomitant]
     Dosage: 5 MG, DAILY (1/D)
     Route: 048
  6. LEVOTHYROXINE SODIUM [Concomitant]
     Dosage: 100 UG, DAILY (1/D)
     Route: 048
     Dates: end: 20070201
  7. LEVOTHYROXINE SODIUM [Concomitant]
     Dosage: 75 UG, DAILY (1/D)
     Route: 048
     Dates: start: 20070202

REACTIONS (1)
  - OEDEMA PERIPHERAL [None]
